FAERS Safety Report 22167654 (Version 1)
Quarter: 2023Q2

REPORT INFORMATION
  Report Type: Spontaneous
  Country: US (occurrence: US)
  Receive Date: 20230403
  Receipt Date: 20230403
  Transmission Date: 20230722
  Serious: No
  Sender: FDA-Public Use
  Company Number: US-PFIZER INC-202300138417

PATIENT
  Age: 57 Year
  Sex: Female
  Weight: 66.68 kg

DRUGS (3)
  1. IBRANCE [Suspect]
     Active Substance: PALBOCICLIB
     Indication: Breast cancer metastatic
     Dosage: 125 MG
  2. IBRANCE [Suspect]
     Active Substance: PALBOCICLIB
     Dosage: 100 MG, CYCLIC (ONCE DAILY FOR 21 DAYS AND THEN SEVEN DAYS OFF AND REPEAT THE CYCLE )
  3. AROMASIN [Concomitant]
     Active Substance: EXEMESTANE
     Indication: Oestrogen therapy
     Dosage: 25 MG, 1X/DAY

REACTIONS (1)
  - Full blood count abnormal [Unknown]
